FAERS Safety Report 14752188 (Version 2)
Quarter: 2018Q2

REPORT INFORMATION
  Report Type: Spontaneous
  Country: US (occurrence: US)
  Receive Date: 20180412
  Receipt Date: 20180422
  Transmission Date: 20180711
  Serious: Yes (Hospitalization, Other)
  Sender: FDA-Public Use
  Company Number: US-APOTEX-2018AP010283

PATIENT
  Age: 60 Year
  Sex: Female

DRUGS (1)
  1. LITHIUM CARBONATE. [Suspect]
     Active Substance: LITHIUM CARBONATE
     Indication: BIPOLAR DISORDER
     Dosage: UNK
     Route: 065

REACTIONS (7)
  - Hypercalcaemia [Recovered/Resolved]
  - Loss of consciousness [Recovered/Resolved]
  - Acute respiratory failure [Recovered/Resolved]
  - Pneumonia [Recovered/Resolved]
  - Thyroid function test abnormal [Recovered/Resolved]
  - Hypernatraemia [Recovered/Resolved]
  - Hyperglycaemia [Recovered/Resolved]
